FAERS Safety Report 4572243-8 (Version None)
Quarter: 2005Q1

REPORT INFORMATION
  Report Type: 
  Country: None (occurrence: None)
  Receive Date: 20050203
  Receipt Date: 20050119
  Transmission Date: 20050727
  Serious: Yes (Hospitalization)
  Sender: FDA-Public Use
  Company Number: F01200500111

PATIENT
  Age: 70 Year
  Sex: Male

DRUGS (6)
  1. OXALIPLATIN - SOLUTION - 162.5 MG [Suspect]
     Indication: COLORECTAL CANCER METASTATIC
     Dosage: 162.5 MG Q2W INTRAVENOUS NOS
     Route: 042
  2. FLUOROURACIL - SOLUTION- 1898 MG [Suspect]
     Dosage: 750 MG IV BOLUS AND 1148 MG IV CONTINUOUS INFUSION
     Route: 042
  3. LEUCOVORIN - SOLUTION - 380 MG [Suspect]
     Dosage: 380 MG Q2W, INTRAVENOUS NOUS
     Route: 042
  4. BEVACIZUMAB OR PLACEBO - SOLUTION - 350 MG [Suspect]
     Dosage: 350 MG Q2W INTRAVENOUS NOS
     Route: 042
  5. GAVISCON (ALGINIC ACID/ALUMINIUM HYDROXIDE/MAGNESIUM CARBONATE/MAGNESI [Concomitant]
  6. OMEPRAZOLE [Concomitant]

REACTIONS (2)
  - ATRIAL FIBRILLATION [None]
  - HEART RATE INCREASED [None]
